FAERS Safety Report 8373370-X (Version None)
Quarter: 2012Q2

REPORT INFORMATION
  Report Type: 
  Country: None (occurrence: None)
  Receive Date: 20120521
  Receipt Date: 20120508
  Transmission Date: 20120825
  Serious: Yes (Hospitalization)
  Sender: FDA-Public Use
  Company Number: US-ELI_LILLY_AND_COMPANY-US201204004528

PATIENT
  Sex: Female

DRUGS (2)
  1. FORTEO [Suspect]
     Indication: OSTEOPOROSIS
     Dosage: 20 UG, QD
     Dates: start: 20120301
  2. FORTEO [Suspect]
     Dosage: 20 UG, QD

REACTIONS (4)
  - LIMB OPERATION [None]
  - ARTHRITIS [None]
  - STAPHYLOCOCCAL INFECTION [None]
  - ABSCESS LIMB [None]
